FAERS Safety Report 24543176 (Version 2)
Quarter: 2024Q4

REPORT INFORMATION
  Report Type: Spontaneous
  Country: US (occurrence: US)
  Receive Date: 20241024
  Receipt Date: 20241028
  Transmission Date: 20250115
  Serious: Yes (Other)
  Sender: RANBAXY
  Company Number: US-SUN PHARMACEUTICAL INDUSTRIES LTD-2024R1-474821

PATIENT
  Age: 23 Year
  Sex: Female

DRUGS (5)
  1. BRIVARACETAM [Suspect]
     Active Substance: BRIVARACETAM
     Indication: Juvenile myoclonic epilepsy
     Dosage: 150 MILLIGRAM, DAILY
     Route: 065
  2. FOLIC ACID [Suspect]
     Active Substance: FOLIC ACID
     Indication: Juvenile myoclonic epilepsy
     Dosage: UNK
     Route: 065
  3. EPIDIOLEX [Suspect]
     Active Substance: CANNABIDIOL
     Indication: Juvenile myoclonic epilepsy
     Dosage: 1960 MILLIGRAM, DAILY
     Route: 065
  4. EPIDIOLEX [Suspect]
     Active Substance: CANNABIDIOL
     Dosage: 2150 MILLIGRAM, DAILY
     Route: 065
  5. EPIDIOLEX [Suspect]
     Active Substance: CANNABIDIOL
     Dosage: 2480 MILLIGRAM, DAILY
     Route: 065

REACTIONS (8)
  - Exposure during pregnancy [Unknown]
  - Live birth [Unknown]
  - Gestational diabetes [Unknown]
  - Foetal macrosomia [Unknown]
  - Polyhydramnios [Unknown]
  - Perineal injury [Unknown]
  - Shoulder dystocia [Unknown]
  - Weight increased [Unknown]
